FAERS Safety Report 9595490 (Version 6)
Quarter: 2014Q1

REPORT INFORMATION
  Report Type: Spontaneous
  Country: US (occurrence: US)
  Receive Date: 20131004
  Receipt Date: 20140120
  Transmission Date: 20141002
  Serious: Yes (Hospitalization)
  Sender: FDA-Public Use
  Company Number: US-PFIZER INC-2013279446

PATIENT
  Age: 68 Year
  Sex: Male

DRUGS (12)
  1. SUTENT [Suspect]
     Indication: RENAL CANCER
     Dosage: 25 MG, 1X/DAY (1 QD)
     Route: 048
     Dates: start: 20130813, end: 20131118
  2. HYDROMET [Concomitant]
     Dosage: UNK
  3. LUMIGAN [Concomitant]
     Dosage: UNK
  4. DORZOLAMIDE HYDROCHLORIDE [Concomitant]
     Dosage: UNK
  5. CITALOPRAM HYDROBROMIDE [Concomitant]
     Dosage: UNK
  6. METOPROLOL TARTRATE [Concomitant]
     Dosage: UNK
  7. ALLOPURINOL [Concomitant]
     Dosage: UNK
  8. CENTRUM SILVER ULTRA MEN^S [Concomitant]
     Dosage: UNK
  9. HYDROCORTISONE ACETATE [Concomitant]
     Dosage: UNK
  10. SIMVASTATIN [Concomitant]
     Dosage: UNK
  11. ZOLPIDEM TARTRATE [Concomitant]
     Dosage: UNK
  12. STOOL SOFTENER [Concomitant]
     Dosage: UNK

REACTIONS (6)
  - Blood test abnormal [Unknown]
  - Rash [Unknown]
  - Pruritus [Unknown]
  - Bronchitis [Recovered/Resolved]
  - Disease progression [Unknown]
  - Renal cancer [Unknown]
